FAERS Safety Report 9748474 (Version 1)
Quarter: 2013Q4

REPORT INFORMATION
  Report Type: Spontaneous
  Country: US (occurrence: None)
  Receive Date: 20131209
  Receipt Date: 20131209
  Transmission Date: 20140711
  Serious: Yes (Life-Threatening, Hospitalization)
  Sender: FDA-Public Use
  Company Number: 001639665A

PATIENT
  Age: 15 Year
  Sex: Male

DRUGS (2)
  1. PROACTIV+ SKIN SMOOTHING EXFOLIATOR [Suspect]
     Indication: ACNE
     Dosage: ONCE DERMAL
     Route: 023
     Dates: start: 20131121
  2. DAILY MULTIVITAMIN [Concomitant]

REACTIONS (2)
  - Swelling face [None]
  - Dyspnoea [None]
